FAERS Safety Report 8028025-8 (Version None)
Quarter: 2012Q1

REPORT INFORMATION
  Report Type: 
  Country: None (occurrence: None)
  Receive Date: 20120106
  Receipt Date: 20120105
  Transmission Date: 20120608
  Serious: Yes (Other)
  Sender: FDA-Public Use
  Company Number: TH-BAYER-2011-119413

PATIENT
  Age: 29 Year
  Sex: Female
  Weight: 60 kg

DRUGS (1)
  1. YASMIN [Suspect]
     Indication: CONTRACEPTION
     Dosage: UNK
     Route: 048
     Dates: start: 20100601

REACTIONS (5)
  - CHEST DISCOMFORT [None]
  - DIZZINESS [None]
  - RASH [None]
  - FATIGUE [None]
  - SYNCOPE [None]
